APPROVED DRUG PRODUCT: MYFORTIC
Active Ingredient: MYCOPHENOLATE SODIUM
Strength: EQ 180MG BASE
Dosage Form/Route: TABLET, DELAYED RELEASE;ORAL
Application: N050791 | Product #001 | TE Code: AB
Applicant: NOVARTIS PHARMACEUTICALS CORP
Approved: Feb 27, 2004 | RLD: Yes | RS: No | Type: RX